FAERS Safety Report 9398088 (Version 1)
Quarter: 2013Q3

REPORT INFORMATION
  Report Type: Report from Study
  Country: CA (occurrence: CA)
  Receive Date: 20130712
  Receipt Date: 20130712
  Transmission Date: 20140515
  Serious: Yes (Other)
  Sender: FDA-Public Use
  Company Number: CA-JNJFOC-20130705445

PATIENT
  Sex: Male
  Weight: 68 kg

DRUGS (4)
  1. REMICADE [Suspect]
     Indication: CROHN^S DISEASE
     Route: 042
     Dates: start: 200404
  2. IMURAN [Concomitant]
     Route: 065
  3. FLAGYL [Concomitant]
     Route: 065
  4. CO-ETIDROCAL [Concomitant]
     Route: 065

REACTIONS (1)
  - Mass [Not Recovered/Not Resolved]
